FAERS Safety Report 9439714 (Version 1)
Quarter: 2013Q4

REPORT INFORMATION
  Report Type: Spontaneous
  Country: US (occurrence: None)
  Receive Date: 20130802
  Receipt Date: 20130802
  Transmission Date: 20140711
  Serious: Yes (Hospitalization)
  Sender: FDA-Public Use
  Company Number: None

PATIENT
  Age: 48 Year
  Sex: Female
  Weight: 94.8 kg

DRUGS (3)
  1. AVASTIN [Suspect]
  2. CARBOPLATIN [Suspect]
  3. ABRAXANE [Suspect]

REACTIONS (6)
  - Breast pain [None]
  - Pyrexia [None]
  - Chills [None]
  - Mastitis [None]
  - Lymphadenopathy [None]
  - Breast mass [None]
